FAERS Safety Report 6173365-0 (Version None)
Quarter: 2009Q2

REPORT INFORMATION
  Report Type: 
  Country: None (occurrence: None)
  Receive Date: 20090430
  Receipt Date: 20090422
  Transmission Date: 20091009
  Serious: Yes (Death)
  Sender: FDA-Public Use
  Company Number: US-GILEAD-2009-0021609

PATIENT
  Sex: Male
  Weight: 81.72 kg

DRUGS (16)
  1. LETAIRIS [Suspect]
     Indication: PULMONARY ARTERIAL HYPERTENSION
     Route: 048
     Dates: start: 20080609, end: 20090319
  2. LASIX [Concomitant]
  3. LISINOPRIL [Concomitant]
  4. COZAAR [Concomitant]
  5. COREG [Concomitant]
  6. ADVAIR HFA [Concomitant]
  7. DUONEB [Concomitant]
  8. POTASSIUM CHLORIDE [Concomitant]
  9. CYMBALTA [Concomitant]
  10. NIASPAN [Concomitant]
  11. CARAFATE [Concomitant]
  12. CLONAZEPAM [Concomitant]
  13. NEXIUM [Concomitant]
  14. LORTAB [Concomitant]
  15. ALEVE [Concomitant]
  16. VYTORIN [Concomitant]

REACTIONS (1)
  - DEATH [None]
